FAERS Safety Report 7573448-4 (Version None)
Quarter: 2011Q2

REPORT INFORMATION
  Report Type: 
  Country: None (occurrence: None)
  Receive Date: 20110627
  Receipt Date: 20110609
  Transmission Date: 20111010
  Serious: No
  Sender: FDA-Public Use
  Company Number: US-B.I. PHARMACEUTICALS,INC./RIDGEFIELD-2011-BP-15308BP

PATIENT
  Sex: Female

DRUGS (2)
  1. PRADAXA [Suspect]
     Dosage: 150 MG
  2. PRADAXA [Suspect]
     Dosage: 300 MG
     Dates: end: 20110609

REACTIONS (1)
  - CREATININE RENAL CLEARANCE DECREASED [None]
